FAERS Safety Report 12969071 (Version 8)
Quarter: 2017Q3

REPORT INFORMATION
  Report Type: Spontaneous
  Country: US (occurrence: US)
  Receive Date: 20161123
  Receipt Date: 20170811
  Transmission Date: 20171127
  Serious: Yes (Hospitalization, Other)
  Sender: FDA-Public Use
  Company Number: US-PFIZER INC-2016538231

PATIENT
  Age: 74 Year
  Sex: Female

DRUGS (1)
  1. XELJANZ [Suspect]
     Active Substance: TOFACITINIB CITRATE
     Dosage: 5 MG, UNK
     Dates: start: 201412, end: 20170807

REACTIONS (8)
  - Oropharyngeal pain [Unknown]
  - Pharyngitis [Unknown]
  - Bone contusion [Unknown]
  - Fall [Unknown]
  - Urinary tract infection [Recovered/Resolved]
  - Abdominal discomfort [Unknown]
  - Bronchitis [Unknown]
  - Dysuria [Unknown]
